FAERS Safety Report 4334516-3 (Version None)
Quarter: 2004Q2

REPORT INFORMATION
  Report Type: 
  Country: None (occurrence: None)
  Receive Date: 20040407
  Receipt Date: 20040324
  Transmission Date: 20050107
  Serious: Yes (Other)
  Sender: FDA-Public Use
  Company Number: GB-GLAXOSMITHKLINE-B0327814A

PATIENT
  Age: 40 Year
  Sex: Female

DRUGS (1)
  1. SEROXAT [Suspect]
     Dates: start: 20040301

REACTIONS (3)
  - HEMIPARESIS [None]
  - MUSCULOSKELETAL STIFFNESS [None]
  - SENSORY DISTURBANCE [None]
